FAERS Safety Report 6444099-X (Version None)
Quarter: 2009Q4

REPORT INFORMATION
  Report Type: 
  Country: None (occurrence: None)
  Receive Date: 20091118
  Receipt Date: 20090930
  Transmission Date: 20100525
  Serious: Yes (Life-Threatening, Hospitalization, Other)
  Sender: FDA-Public Use
  Company Number: IT-RANBAXY-2009US-24750

PATIENT

DRUGS (3)
  1. PHENOBARBITAL [Suspect]
     Indication: EPILEPSY
     Dosage: UNK, UNK
     Route: 065
     Dates: start: 20070301
  2. CIPROFLOXACIN [Suspect]
     Indication: OROPHARYNGEAL PAIN
     Route: 048
  3. CIPROFLOXACIN [Suspect]
     Indication: ODYNOPHAGIA

REACTIONS (15)
  - BLISTER [None]
  - CONJUNCTIVITIS INFECTIVE [None]
  - ERYTHEMA [None]
  - GENERALISED ERYTHEMA [None]
  - LIP EROSION [None]
  - MALAISE [None]
  - ODYNOPHAGIA [None]
  - OROPHARYNGEAL PAIN [None]
  - PYREXIA [None]
  - RASH [None]
  - SKIN LESION [None]
  - STEVENS-JOHNSON SYNDROME [None]
  - STOMATITIS [None]
  - TOXIC EPIDERMAL NECROLYSIS [None]
  - VULVOVAGINAL BURNING SENSATION [None]
